FAERS Safety Report 5683345-7 (Version None)
Quarter: 2008Q1

REPORT INFORMATION
  Report Type: 
  Country: None (occurrence: None)
  Receive Date: 20080327
  Receipt Date: 20080317
  Transmission Date: 20080703
  Serious: Yes (Other)
  Sender: FDA-Public Use
  Company Number: US-PFIZER INC-2008024665

PATIENT
  Sex: Female
  Weight: 81.6 kg

DRUGS (7)
  1. CELEBREX [Suspect]
     Indication: ARTHRALGIA
  2. PRAVACHOL [Concomitant]
  3. TOPROL [Concomitant]
  4. LEXAPRO [Concomitant]
  5. AVALIDE [Concomitant]
  6. TYLENOL EXTRA-STRENGTH [Concomitant]
  7. ALL OTHER THERAPEUTIC PRODUCTS [Concomitant]

REACTIONS (4)
  - EYE OPERATION [None]
  - GASTROINTESTINAL DISORDER [None]
  - HYPERSENSITIVITY [None]
  - SKIN EXFOLIATION [None]
